FAERS Safety Report 22610289 (Version 4)
Quarter: 2024Q1

REPORT INFORMATION
  Report Type: Report from Study
  Country: CO (occurrence: CO)
  Receive Date: 20230616
  Receipt Date: 20240130
  Transmission Date: 20240410
  Serious: Yes (Hospitalization)
  Sender: FDA-Public Use
  Company Number: CO-002147023-NVSC2023CO136504

PATIENT
  Sex: Female

DRUGS (2)
  1. ILARIS [Suspect]
     Active Substance: CANAKINUMAB
     Indication: Still^s disease
     Dosage: 100 MG, QMO
     Route: 058
  2. ILARIS [Suspect]
     Active Substance: CANAKINUMAB
     Dosage: 120 MG, QMO
     Route: 058
     Dates: start: 20181211

REACTIONS (8)
  - Pneumothorax [Unknown]
  - Oxygen consumption decreased [Unknown]
  - Still^s disease [Unknown]
  - Pneumonia [Unknown]
  - Illness [Unknown]
  - Lung disorder [Unknown]
  - Hypersensitivity [Unknown]
  - Bacterial allergy [Unknown]
